FAERS Safety Report 10180079 (Version 1)
Quarter: 2014Q2

REPORT INFORMATION
  Report Type: Spontaneous
  Country: US (occurrence: US)
  Receive Date: 20140519
  Receipt Date: 20140519
  Transmission Date: 20141212
  Serious: No
  Sender: FDA-Public Use
  Company Number: US-AMGEN INC.-USASP2013075172

PATIENT
  Age: 58 Year
  Sex: Female

DRUGS (4)
  1. PROLIA [Suspect]
     Indication: OSTEOPOROSIS POSTMENOPAUSAL
     Dosage: UNK
     Route: 065
     Dates: start: 201304
  2. CELEBREX [Concomitant]
     Dosage: UNK
     Route: 065
  3. EFFEXOR [Concomitant]
     Dosage: 3.75 MG, UNK
     Route: 065
  4. KLONOPIN [Concomitant]
     Indication: MUSCLE SPASMS
     Dosage: 1 MG, UNK
     Route: 065

REACTIONS (6)
  - Joint crepitation [Not Recovered/Not Resolved]
  - Arthropathy [Not Recovered/Not Resolved]
  - Influenza like illness [Recovered/Resolved]
  - Diarrhoea [Recovered/Resolved]
  - Inflammation [Recovered/Resolved]
  - Abdominal distension [Recovered/Resolved]
